FAERS Safety Report 7478828-3 (Version None)
Quarter: 2011Q2

REPORT INFORMATION
  Report Type: 
  Country: None (occurrence: None)
  Receive Date: 20110513
  Receipt Date: 20110504
  Transmission Date: 20111010
  Serious: Yes (Hospitalization)
  Sender: FDA-Public Use
  Company Number: US-JNJFOC-20101208922

PATIENT
  Sex: Male
  Weight: 104.33 kg

DRUGS (16)
  1. TYLENOL-500 [Suspect]
     Indication: ARTHRITIS
     Route: 048
  2. GLYBURIDE AND METFORMIN HCL [Concomitant]
     Indication: DIABETES MELLITUS
  3. LISINOPRIL AND HYDROCHLOROTHIAZIDE [Concomitant]
     Indication: BLOOD PRESSURE
  4. FEXOFENADINE HCL [Concomitant]
     Indication: MULTIPLE ALLERGIES
  5. CENTRUM SILVER [Concomitant]
     Indication: VITAMIN SUPPLEMENTATION
  6. VIAGRA [Concomitant]
  7. PLAVIX [Suspect]
     Indication: ANTICOAGULANT THERAPY
  8. FERROUS SULFATE TAB [Concomitant]
     Indication: ULCER HAEMORRHAGE
  9. LANTUS [Concomitant]
     Indication: DIABETES MELLITUS
  10. JANUVIA [Concomitant]
     Indication: DIABETES MELLITUS
  11. NEXIUM [Concomitant]
     Indication: ULCER
  12. ALLEGRA [Concomitant]
  13. TYLENOL-500 [Suspect]
     Route: 048
  14. LIPITOR [Concomitant]
     Indication: BLOOD CHOLESTEROL
  15. FERROUS SULFATE TAB [Concomitant]
  16. ASPIRIN [Suspect]
     Indication: CORONARY ARTERIAL STENT INSERTION

REACTIONS (3)
  - PRODUCT LABEL ON WRONG PRODUCT [None]
  - WRONG DRUG ADMINISTERED [None]
  - GASTRIC ULCER HAEMORRHAGE [None]
